FAERS Safety Report 25647849 (Version 1)
Quarter: 2025Q3

REPORT INFORMATION
  Report Type: Spontaneous
  Country: US (occurrence: US)
  Receive Date: 20250806
  Receipt Date: 20250806
  Transmission Date: 20251020
  Serious: No
  Sender: GLAXOSMITHKLINE
  Company Number: US-GSK-US2025AMR087272

PATIENT
  Sex: Male

DRUGS (1)
  1. NUCALA [Suspect]
     Active Substance: MEPOLIZUMAB
     Indication: Asthma
     Dosage: 100 MG, Q4
     Dates: start: 202506

REACTIONS (7)
  - Hypotension [Unknown]
  - Palpitations [Unknown]
  - Productive cough [Recovering/Resolving]
  - Tachycardia [Unknown]
  - Bradycardia [Unknown]
  - Injection site erythema [Unknown]
  - Injection site bruising [Unknown]
